FAERS Safety Report 16835208 (Version 1)
Quarter: 2019Q3

REPORT INFORMATION
  Report Type: Report from Study
  Country: None (occurrence: US)
  Receive Date: 20190920
  Receipt Date: 20190920
  Transmission Date: 20191005
  Serious: Yes (Other)
  Sender: FDA-Public Use
  Company Number: US-ABBVIE-19K-163-2932155-00

PATIENT
  Age: 27 Year
  Sex: Female

DRUGS (3)
  1. DEPAKOTE [Suspect]
     Active Substance: DIVALPROEX SODIUM
     Dosage: EXTENDED RELEASE 1 AT NIGHT
     Route: 048
     Dates: start: 2009, end: 201907
  2. DEPAKOTE [Suspect]
     Active Substance: DIVALPROEX SODIUM
     Dosage: EXTENDED RELEASE 1 AT NIGHT
     Route: 048
     Dates: start: 201908
  3. DEPAKOTE [Suspect]
     Active Substance: DIVALPROEX SODIUM
     Indication: SEIZURE
     Dosage: DELAYED RELEASE
     Route: 048
     Dates: start: 201908, end: 201908

REACTIONS (4)
  - Product dispensing error [Recovered/Resolved]
  - Seizure [Recovering/Resolving]
  - Wrong product administered [Recovered/Resolved]
  - Facial bones fracture [Recovering/Resolving]

NARRATIVE: CASE EVENT DATE: 201908
